FAERS Safety Report 15844052 (Version 3)
Quarter: 2019Q1

REPORT INFORMATION
  Report Type: Report from Study
  Country: US (occurrence: US)
  Receive Date: 20190118
  Receipt Date: 20190319
  Transmission Date: 20190417
  Serious: No
  Sender: FDA-Public Use
  Company Number: PHEH2019US002869

PATIENT
  Sex: Female

DRUGS (3)
  1. ILARIS [Suspect]
     Active Substance: CANAKINUMAB
     Indication: STILL^S DISEASE
     Dosage: 300 MG, QMO (30 DAYS)
     Route: 058
     Dates: start: 20171014
  2. ILARIS [Suspect]
     Active Substance: CANAKINUMAB
     Dosage: 300 MG, EVERY 28 DAYS
     Route: 058
  3. ILARIS [Suspect]
     Active Substance: CANAKINUMAB
     Dosage: 300 MG, QMO
     Route: 058
     Dates: start: 20190114

REACTIONS (1)
  - Inappropriate schedule of product administration [Recovered/Resolved]
